FAERS Safety Report 6648877-3 (Version None)
Quarter: 2010Q1

REPORT INFORMATION
  Report Type: 
  Country: None (occurrence: None)
  Receive Date: 20100324
  Receipt Date: 20100324
  Transmission Date: 20100710
  Serious: Yes (Hospitalization)
  Sender: FDA-Public Use
  Company Number: TH-PFIZER INC-2010006191

PATIENT
  Sex: Male

DRUGS (1)
  1. ERAXIS [Suspect]
     Indication: SYSTEMIC CANDIDA
     Dosage: 100 MG, 1X/DAY
     Route: 042
     Dates: start: 20081031, end: 20081114

REACTIONS (2)
  - HEPATITIS ACUTE [None]
  - RENAL FAILURE ACUTE [None]
